FAERS Safety Report 8565843-1 (Version None)
Quarter: 2012Q3

REPORT INFORMATION
  Report Type: 
  Country: None (occurrence: None)
  Receive Date: 20120724
  Receipt Date: 20120711
  Transmission Date: 20120928
  Serious: Yes (Death, Other)
  Sender: FDA-Public Use
  Company Number: 2012P1050073

PATIENT
  Age: 57 Year
  Sex: Female

DRUGS (10)
  1. ETHANOL (NO PREF. NAME) [Suspect]
     Indication: INTENTIONAL OVERDOSE
  2. QUETIAPINE [Suspect]
     Indication: INTENTIONAL OVERDOSE
  3. VERAPAMIL [Suspect]
     Indication: INTENTIONAL OVERDOSE
  4. LAMOTRIGINE [Suspect]
     Indication: INTENTIONAL OVERDOSE
  5. LEVETIRACETAM [Suspect]
     Indication: INTENTIONAL OVERDOSE
  6. TRAZODONE HCL [Suspect]
     Indication: INTENTIONAL OVERDOSE
  7. DIPHENHYDRAMINE HCL [Suspect]
     Indication: INTENTIONAL OVERDOSE
  8. CITALOPRAM HYDROBROMIDE [Suspect]
     Indication: INTENTIONAL OVERDOSE
  9. MEMANTINE [Suspect]
     Indication: INTENTIONAL OVERDOSE
  10. M-CPP (NO PREF. NAME) [Suspect]
     Indication: INTENTIONAL OVERDOSE

REACTIONS (3)
  - MULTIPLE DRUG OVERDOSE INTENTIONAL [None]
  - TOXICITY TO VARIOUS AGENTS [None]
  - COMPLETED SUICIDE [None]
